FAERS Safety Report 7811919-3 (Version None)
Quarter: 2011Q4

REPORT INFORMATION
  Report Type: 
  Country: None (occurrence: None)
  Receive Date: 20111013
  Receipt Date: 20111012
  Transmission Date: 20120403
  Serious: Yes (Death, Hospitalization)
  Sender: FDA-Public Use
  Company Number: PHEH2011US05176

PATIENT
  Sex: Female

DRUGS (3)
  1. HYDROXYUREA [Concomitant]
     Indication: ANAEMIA
     Dosage: 500,  BID
  2. EXJADE [Suspect]
     Dosage: 500 MG, BID
     Route: 048
  3. FOLIC ACID [Concomitant]

REACTIONS (3)
  - HEPATIC FAILURE [None]
  - RENAL FAILURE [None]
  - SICKLE CELL ANAEMIA WITH CRISIS [None]
